FAERS Safety Report 4740442-8 (Version None)
Quarter: 2005Q3

REPORT INFORMATION
  Report Type: 
  Country: None (occurrence: None)
  Receive Date: 20050810
  Receipt Date: 20050802
  Transmission Date: 20060218
  Serious: Yes (Hospitalization)
  Sender: FDA-Public Use
  Company Number: 200516889GDDC

PATIENT
  Sex: 0

DRUGS (6)
  1. DOCETAXEL [Suspect]
     Indication: GASTROOESOPHAGEAL CANCER
     Route: 042
     Dates: start: 20050720, end: 20050727
  2. CARBOPLATIN [Suspect]
     Route: 042
     Dates: start: 20050720, end: 20050720
  3. FLUOROURACIL [Suspect]
     Route: 042
     Dates: start: 20050720
  4. WARFARIN [Concomitant]
     Route: 048
     Dates: start: 20050429
  5. MAXOLON [Concomitant]
     Indication: PROPHYLAXIS
     Route: 048
     Dates: start: 20050218
  6. FERROGRAD [Concomitant]
     Indication: PROPHYLAXIS
     Dosage: DOSE: 1 TAB
     Route: 048
     Dates: start: 20050408

REACTIONS (4)
  - BLOOD MAGNESIUM DECREASED [None]
  - HAEMOGLOBIN DECREASED [None]
  - PYREXIA [None]
  - WHITE BLOOD CELL COUNT DECREASED [None]
